FAERS Safety Report 7657221-4 (Version None)
Quarter: 2011Q3

REPORT INFORMATION
  Report Type: 
  Country: None (occurrence: None)
  Receive Date: 20110804
  Receipt Date: 20110728
  Transmission Date: 20111222
  Serious: Yes (Death, Other)
  Sender: FDA-Public Use
  Company Number: US-BAYER-2011-006551

PATIENT
  Age: 59 Year
  Sex: Male

DRUGS (17)
  1. TRASYLOL [Suspect]
     Indication: CORONARY ARTERY BYPASS
     Dosage: 1 ML (TEST DOSE)
     Route: 042
     Dates: start: 20040124, end: 20040124
  2. METHOTREXATE [Concomitant]
     Dosage: WEEKLY
  3. DIGOXIN [Concomitant]
  4. VECURONIUM BROMIDE [Concomitant]
  5. ANCEF [Concomitant]
     Dosage: 1 GM
  6. TRASYLOL [Suspect]
     Dosage: 2 MILLION UNITS
     Route: 042
     Dates: start: 20050124, end: 20050124
  7. INSULIN [Concomitant]
  8. FENTANYL [Concomitant]
  9. NITROGLYCERIN [Concomitant]
  10. VERSED [Concomitant]
  11. PROTAMINE [Concomitant]
  12. ALBUTEROL SULFATE AUTOHALER [Concomitant]
  13. TRASYLOL [Suspect]
     Dosage: 50 CC/HR
     Route: 042
     Dates: start: 20050124, end: 20050124
  14. PREDNISONE [Concomitant]
     Dosage: 5 MG, QD
  15. NOREPINEPHRINE BITARTRATE [Concomitant]
  16. HEPARIN [Concomitant]
  17. SOLU-CORTEF [Concomitant]

REACTIONS (14)
  - RENAL FAILURE [None]
  - UNEVALUABLE EVENT [None]
  - STRESS [None]
  - ANHEDONIA [None]
  - RENAL INJURY [None]
  - EMOTIONAL DISTRESS [None]
  - INJURY [None]
  - DEATH [None]
  - ANXIETY [None]
  - FEAR [None]
  - MYOCARDIAL INFARCTION [None]
  - MULTI-ORGAN FAILURE [None]
  - RENAL IMPAIRMENT [None]
  - PAIN [None]
